FAERS Safety Report 8880013 (Version 3)
Quarter: 2012Q4

REPORT INFORMATION
  Report Type: 
  Country: JP (occurrence: JP)
  Receive Date: 20121101
  Receipt Date: 20121221
  Transmission Date: 20130627
  Serious: Yes (Hospitalization)
  Sender: FDA-Public Use
  Company Number: JP-AMGEN-JPNSP2012068666

PATIENT
  Age: 77 Year
  Sex: Female

DRUGS (10)
  1. ENBREL [Suspect]
     Indication: RHEUMATOID ARTHRITIS
     Dosage: 25 mg, weekly
     Route: 058
     Dates: start: 2007, end: 201203
  2. ENBREL [Suspect]
     Dosage: 25 mg, 2x/week
     Route: 058
     Dates: start: 201203, end: 20121011
  3. RHEUMATREX                         /00113801/ [Suspect]
     Indication: RHEUMATOID ARTHRITIS
     Dosage: UNK
     Route: 048
     Dates: start: 201203, end: 20120711
  4. SELBEX [Concomitant]
     Indication: GASTRITIS PROPHYLAXIS
     Dosage: 100 mg, 2x/day
     Route: 048
  5. ZYLORIC [Concomitant]
     Indication: HYPERURICAEMIA
     Dosage: 100 mg, 1x/day
     Route: 048
  6. MAGMITT [Concomitant]
     Indication: CONSTIPATION
     Dosage: 250 mg, 1x/day
     Route: 048
  7. EVISTA [Concomitant]
     Indication: OSTEOPOROSIS
     Dosage: 60 mg, alternate day
     Route: 048
  8. ROCALTROL [Concomitant]
     Indication: OSTEOPOROSIS
     Dosage: 0.25 mug, 1x/day
     Route: 048
  9. ROCALTROL [Concomitant]
     Dosage: 0.25 ug, 1x/day
  10. ADALAT [Concomitant]
     Indication: HYPERTENSION
     Dosage: 20 mg, 2x/day
     Route: 048

REACTIONS (2)
  - Nephritis [Recovering/Resolving]
  - Renal failure [Unknown]
